FAERS Safety Report 6478056-4 (Version None)
Quarter: 2009Q4

REPORT INFORMATION
  Report Type: 
  Country: None (occurrence: None)
  Receive Date: 20091203
  Receipt Date: 20091203
  Transmission Date: 20100525
  Serious: Yes (Death)
  Sender: FDA-Public Use
  Company Number: None

PATIENT
  Sex: Male

DRUGS (16)
  1. REVLIMID [Suspect]
     Indication: MULTIPLE MYELOMA
     Dosage: 10MG DAILY 21D/28D ORALLY
     Route: 048
  2. DEXAMETHASONE TAB [Concomitant]
  3. LORAZEPAM [Concomitant]
  4. ZOLIPIDEM [Concomitant]
  5. FAMOTIDINE [Concomitant]
  6. PROCRIT [Concomitant]
  7. NITROGLYCERIN SL [Concomitant]
  8. ATENOLOL [Concomitant]
  9. SIMVASTATIN [Concomitant]
  10. LISINOPRIL [Concomitant]
  11. MORPHINE [Concomitant]
  12. GABAPENTIN [Concomitant]
  13. HYDROMORPHONE HCL [Concomitant]
  14. FLOMAX [Concomitant]
  15. NORTRIPTYLINE [Concomitant]
  16. ASPIRIN [Concomitant]

REACTIONS (1)
  - NO ADVERSE EVENT [None]
